FAERS Safety Report 21118686 (Version 1)
Quarter: 2022Q3

REPORT INFORMATION
  Report Type: Other
  Country: JP (occurrence: None)
  Receive Date: 20220722
  Receipt Date: 20220722
  Transmission Date: 20221027
  Serious: Yes (Hospitalization, Other)
  Sender: FDA-Public Use
  Company Number: JP-Inventia-000192

PATIENT
  Age: 49 Year
  Sex: Male

DRUGS (14)
  1. PALIPERIDONE [Suspect]
     Active Substance: PALIPERIDONE
     Indication: Schizophrenia
     Dosage: 150 MG PER MONTH
  2. HALOPERIDOL [Concomitant]
     Active Substance: HALOPERIDOL
     Indication: Psychotic symptom
  3. ZOTEPINE [Concomitant]
     Active Substance: ZOTEPINE
     Indication: Psychotic symptom
  4. ASENAPINE [Concomitant]
     Active Substance: ASENAPINE
     Indication: Psychotic symptom
  5. BLONANSERIN [Concomitant]
     Active Substance: BLONANSERIN
     Indication: Psychotic symptom
  6. OLANZAPINE [Concomitant]
     Active Substance: OLANZAPINE
     Indication: Psychotic symptom
  7. ARIPIPRAZOLE [Concomitant]
     Active Substance: ARIPIPRAZOLE
     Indication: Psychotic symptom
  8. QUETIAPINE [Concomitant]
     Active Substance: QUETIAPINE
     Indication: Psychotic symptom
  9. RISPERIDONE [Concomitant]
     Active Substance: RISPERIDONE
     Indication: Psychotic symptom
  10. LEVOMEPROMAZINE [Concomitant]
     Active Substance: LEVOMEPROMAZINE
     Indication: Psychiatric symptom
     Dosage: 5-25 MG PER DAY
  11. BIPERIDEN [Concomitant]
     Active Substance: BIPERIDEN
     Indication: Parkinsonism
     Dosage: 3 MG PER DAY
  12. BREXPIPRAZOLE [Concomitant]
     Active Substance: BREXPIPRAZOLE
     Indication: Psychotic symptom
  13. SUVOREXANT [Concomitant]
     Active Substance: SUVOREXANT
     Indication: Parkinsonism
     Dosage: 20 MG PER DAY
  14. PALIPERIDONE [Suspect]
     Active Substance: PALIPERIDONE
     Indication: Schizophrenia
     Route: 048

REACTIONS (2)
  - Hallucination, auditory [Recovered/Resolved]
  - Disease recurrence [Recovered/Resolved]
